FAERS Safety Report 17514221 (Version 2)
Quarter: 2020Q2

REPORT INFORMATION
  Report Type: Spontaneous
  Country: FR (occurrence: FR)
  Receive Date: 20200306
  Receipt Date: 20200424
  Transmission Date: 20200713
  Serious: Yes (Hospitalization)
  Sender: FDA-Public Use
  Company Number: FR-AUROBINDO-AUR-APL-2020-010794

PATIENT
  Age: 13 Year
  Sex: Female
  Weight: 52 kg

DRUGS (1)
  1. TRAMADOL ARROW TABLET 50MG [Suspect]
     Active Substance: TRAMADOL
     Indication: PRODUCT USED FOR UNKNOWN INDICATION
     Dosage: 250 MILLIGRAM, 1 TOTAL
     Route: 048
     Dates: start: 20200212, end: 20200212

REACTIONS (2)
  - Lipase increased [Recovered/Resolved]
  - Overdose [Recovered/Resolved]

NARRATIVE: CASE EVENT DATE: 20200212
